FAERS Safety Report 21231926 (Version 1)
Quarter: 2022Q3

REPORT INFORMATION
  Report Type: Spontaneous
  Country: CN (occurrence: None)
  Receive Date: 20220819
  Receipt Date: 20220819
  Transmission Date: 20221027
  Serious: Yes (Other)
  Sender: FDA-Public Use
  Company Number: 2022A288569

PATIENT
  Age: 21550 Day
  Sex: Female
  Weight: 65 kg

DRUGS (1)
  1. TICAGRELOR [Suspect]
     Active Substance: TICAGRELOR
     Indication: Coronary artery disease
     Route: 048
     Dates: start: 20220713, end: 20220714

REACTIONS (1)
  - Orthopnoea [Recovered/Resolved]

NARRATIVE: CASE EVENT DATE: 20220714
